FAERS Safety Report 4783881-1 (Version None)
Quarter: 2005Q3

REPORT INFORMATION
  Report Type: 
  Country: None (occurrence: None)
  Receive Date: 20050928
  Receipt Date: 22000916
  Transmission Date: 20060218
  Serious: Yes (Hospitalization)
  Sender: FDA-Public Use
  Company Number: TCI2005A03920

PATIENT
  Age: 77 Year
  Sex: Male

DRUGS (6)
  1. ACTOS [Suspect]
     Indication: DIABETES MELLITUS NON-INSULIN-DEPENDENT
     Dosage: 30 MG (30 MG, 1 D), ORAL
     Route: 048
     Dates: start: 20050804
  2. BLOPRESS (CANDESARTAN CILEXETIL) [Concomitant]
  3. METHYCOBAL (MECOBALAMIN) [Concomitant]
  4. DEPAS (ETIZOLAM) [Concomitant]
  5. LENDORM [Concomitant]
  6. ZADITEN [Concomitant]

REACTIONS (3)
  - POLYP [None]
  - POST PROCEDURAL HAEMORRHAGE [None]
  - TONSILLAR DISORDER [None]
